FAERS Safety Report 7487312-2 (Version None)
Quarter: 2011Q2

REPORT INFORMATION
  Report Type: 
  Country: None (occurrence: None)
  Receive Date: 20110510
  Receipt Date: 20110503
  Transmission Date: 20111010
  Serious: Yes (Disabling)
  Sender: FDA-Public Use
  Company Number: WAES 1104FRA00142

PATIENT
  Age: 48 Year
  Sex: Male

DRUGS (9)
  1. ATAZANAVIR [Concomitant]
  2. OMEPRAZOLE [Concomitant]
  3. PREZISTA [Concomitant]
  4. AERIUS [Concomitant]
  5. TAB RALTEGRAVIR POTASSIUM UNK [Suspect]
     Indication: HIV INFECTION
     Dates: start: 20110127, end: 20110307
  6. TAB RALTEGRAVIR POTASSIUM UNK [Suspect]
     Indication: HIV INFECTION
     Dates: start: 20110327, end: 20110328
  7. PAROXETINE HCL [Concomitant]
  8. TAB CELSENTRI (MARAVIROC) [Suspect]
     Dosage: 150 MG/BID PO
     Route: 048
     Dates: start: 20110112
  9. NORVIR [Concomitant]

REACTIONS (1)
  - ARTHRALGIA [None]
